FAERS Safety Report 5082619-0 (Version None)
Quarter: 2006Q3

REPORT INFORMATION
  Report Type: 
  Country: None (occurrence: None)
  Receive Date: 20060814
  Receipt Date: 20060803
  Transmission Date: 20061208
  Serious: Yes (Other)
  Sender: FDA-Public Use
  Company Number: 14524

PATIENT
  Age: 43 Year
  Sex: Female

DRUGS (1)
  1. MORPHINE [Suspect]
     Indication: ANALGESIC EFFECT

REACTIONS (4)
  - MEDICAL DEVICE COMPLICATION [None]
  - MEDICATION ERROR [None]
  - OVERDOSE [None]
  - RESPIRATORY ARREST [None]
